FAERS Safety Report 8036704-1 (Version None)
Quarter: 2012Q1

REPORT INFORMATION
  Report Type: 
  Country: None (occurrence: None)
  Receive Date: 20120111
  Receipt Date: 20111228
  Transmission Date: 20120608
  Serious: Yes (Death)
  Sender: FDA-Public Use
  Company Number: US-UCBSA-049029

PATIENT
  Age: 55 Year
  Sex: Female

DRUGS (13)
  1. MORPHINE [Suspect]
     Route: 048
  2. LISINOPRIL [Suspect]
     Route: 048
  3. CIMETIDINE [Suspect]
     Route: 048
  4. EZETIMIBE/SIMVASTATIN [Suspect]
     Route: 048
  5. ALPRAZOLAM [Suspect]
     Route: 048
  6. HYDROCODONE BITARTRATE [Suspect]
     Route: 048
  7. NAPROXEN [Suspect]
     Route: 048
  8. MONTELUKAST [Suspect]
     Route: 048
  9. GABAPENTIN [Suspect]
     Route: 048
  10. PRAVASTATIN [Suspect]
     Route: 048
  11. OXYCODONE HCL [Suspect]
     Route: 048
  12. CYCLOBENZAPRINE [Suspect]
     Route: 048
  13. COCAINE [Suspect]
     Route: 048

REACTIONS (1)
  - TOXICITY TO VARIOUS AGENTS [None]
